FAERS Safety Report 19034647 (Version 1)
Quarter: 2021Q1

REPORT INFORMATION
  Report Type: Spontaneous
  Country: US (occurrence: US)
  Receive Date: 20210319
  Receipt Date: 20210319
  Transmission Date: 20210420
  Serious: No
  Sender: FDA-Public Use
  Company Number: US-009507513-2102USA008215

PATIENT
  Age: 11 Year
  Sex: Male

DRUGS (3)
  1. BEVACIZUMAB. [Suspect]
     Active Substance: BEVACIZUMAB
  2. TEMODAR [Suspect]
     Active Substance: TEMOZOLOMIDE
     Indication: SPINAL CORD DISORDER
  3. TEMODAR [Suspect]
     Active Substance: TEMOZOLOMIDE
     Indication: MEDULLOBLASTOMA
     Dosage: UNK, BIW

REACTIONS (1)
  - Product use in unapproved indication [Unknown]
